FAERS Safety Report 9337770 (Version 1)
Quarter: 2013Q2

REPORT INFORMATION
  Report Type: Spontaneous
  Country: NL (occurrence: NL)
  Receive Date: 20130607
  Receipt Date: 20130607
  Transmission Date: 20140414
  Serious: Yes (Hospitalization)
  Sender: FDA-Public Use
  Company Number: NL-ASTRAZENECA-2013SE38535

PATIENT
  Age: 80 Year
  Sex: Male
  Weight: 77 kg

DRUGS (16)
  1. OMEPRAZOL [Suspect]
     Indication: GASTROOESOPHAGEAL REFLUX DISEASE
     Route: 048
     Dates: start: 2009
  2. OMEPRAZOL [Interacting]
     Indication: GASTRITIS
     Route: 048
     Dates: start: 2009
  3. OMEPRAZOL [Interacting]
     Indication: GASTROOESOPHAGEAL REFLUX DISEASE
     Route: 048
     Dates: start: 20121213, end: 20130522
  4. OMEPRAZOL [Interacting]
     Indication: GASTRITIS
     Route: 048
     Dates: start: 20121213, end: 20130522
  5. FUROSEMIDE [Interacting]
     Indication: OEDEMA
     Route: 048
     Dates: start: 20121221, end: 20130522
  6. CLOPIDOGREL [Concomitant]
     Route: 048
     Dates: start: 20121221
  7. ALLOPURINOL [Concomitant]
     Route: 048
     Dates: start: 20130417
  8. ISOSORBIDEMONONITRAAT [Concomitant]
     Route: 048
     Dates: start: 20130106
  9. METOPROLOL SUCCINATE [Concomitant]
     Route: 048
     Dates: start: 20130120
  10. METOPROLOL SUCCINATE [Concomitant]
     Route: 048
     Dates: start: 201304
  11. ASCAL BRISPER CARDIO-NEURO BRUIS [Concomitant]
     Route: 048
     Dates: start: 20121220
  12. ALFACALCIDOL [Concomitant]
     Route: 048
     Dates: start: 201304
  13. EPOETINE THETA [Concomitant]
     Dosage: 6000 IE/ML, 0.3ML, ONCE A WEEK
     Route: 058
     Dates: start: 20120813
  14. ASCORBINEZUUR [Concomitant]
     Route: 048
     Dates: start: 201301
  15. VITAMINE B COMPLEX [Concomitant]
     Route: 048
     Dates: start: 201301
  16. TAMSULOSINE HYDROCHLORIDE [Concomitant]
     Route: 048
     Dates: start: 20060308

REACTIONS (5)
  - Drug interaction [Unknown]
  - Hypocalcaemia [Recovering/Resolving]
  - Renal failure [Unknown]
  - Hypomagnesaemia [Recovering/Resolving]
  - Diarrhoea [Unknown]
